FAERS Safety Report 18573701 (Version 1)
Quarter: 2020Q4

REPORT INFORMATION
  Report Type: Spontaneous
  Country: BR (occurrence: BR)
  Receive Date: 20201203
  Receipt Date: 20201203
  Transmission Date: 20210114
  Serious: Yes (Hospitalization, Other)
  Sender: FDA-Public Use
  Company Number: BR-EUSA PHARMA (UK) LIMITED-2020BR000272

PATIENT

DRUGS (12)
  1. SYLVANT [Suspect]
     Active Substance: SILTUXIMAB
     Indication: CASTLEMAN^S DISEASE
     Dosage: 11 MG/KG, CYCLE 1
     Route: 065
     Dates: start: 202004
  2. SYLVANT [Suspect]
     Active Substance: SILTUXIMAB
     Dosage: 11 MG/KG, CYCLE 4
     Route: 065
  3. FUROSEMIDA [FUROSEMIDE] [Concomitant]
     Active Substance: FUROSEMIDE
     Indication: PRODUCT USED FOR UNKNOWN INDICATION
     Dosage: UNK
     Route: 065
  4. SYLVANT [Suspect]
     Active Substance: SILTUXIMAB
     Dosage: 11 MG/KG, CYCLE 3
     Route: 065
  5. SYLVANT [Suspect]
     Active Substance: SILTUXIMAB
     Dosage: 11 MG/KG, CYCLE 6
     Route: 065
  6. SYLVANT [Suspect]
     Active Substance: SILTUXIMAB
     Dosage: 11 MG/KG, CYCLE 2
     Route: 065
  7. ATENOLOL. [Concomitant]
     Active Substance: ATENOLOL
     Indication: PRODUCT USED FOR UNKNOWN INDICATION
     Dosage: UNK
     Route: 065
  8. SYLVANT [Suspect]
     Active Substance: SILTUXIMAB
     Dosage: 11 MG/KG, CYCLE 7
     Route: 065
  9. SYLVANT [Suspect]
     Active Substance: SILTUXIMAB
     Dosage: 11 MG/KG, EVERY 3 WEEKS, CYCLE 8
     Route: 065
     Dates: end: 202011
  10. PURAN [Concomitant]
     Active Substance: LEVOTHYROXINE SODIUM
     Indication: PRODUCT USED FOR UNKNOWN INDICATION
     Dosage: UNK
     Route: 065
  11. VALSARTANA [Concomitant]
     Active Substance: VALSARTAN
     Indication: PRODUCT USED FOR UNKNOWN INDICATION
     Dosage: UNK
     Route: 065
  12. SYLVANT [Suspect]
     Active Substance: SILTUXIMAB
     Dosage: 11 MG/KG, CYCLE 5
     Route: 065

REACTIONS (5)
  - Anaemia [Unknown]
  - C-reactive protein increased [Unknown]
  - Loss of therapeutic response [Unknown]
  - Thrombocytopenia [Unknown]
  - Renal impairment [Unknown]
